FAERS Safety Report 5034192-0 (Version None)
Quarter: 2006Q2

REPORT INFORMATION
  Report Type: 
  Country: None (occurrence: None)
  Receive Date: 20060626
  Receipt Date: 20060622
  Transmission Date: 20061013
  Serious: Yes (Life-Threatening)
  Sender: FDA-Public Use
  Company Number: BR-GLAXOSMITHKLINE-A0610197A

PATIENT
  Age: 32 Year
  Sex: Male

DRUGS (1)
  1. AEROLIN [Suspect]
     Indication: SUICIDE ATTEMPT
     Dosage: 60ML SINGLE DOSE
     Route: 048
     Dates: start: 20060622, end: 20060622

REACTIONS (5)
  - ANXIETY [None]
  - INTENTIONAL OVERDOSE [None]
  - SUICIDE ATTEMPT [None]
  - TACHYCARDIA [None]
  - TREMOR [None]
